FAERS Safety Report 7309877-3 (Version None)
Quarter: 2011Q1

REPORT INFORMATION
  Report Type: 
  Country: None (occurrence: None)
  Receive Date: 20110224
  Receipt Date: 20091023
  Transmission Date: 20110831
  Serious: No
  Sender: FDA-Public Use
  Company Number: 2009BI034474

PATIENT
  Age: 52 Year
  Sex: Female

DRUGS (1)
  1. TYSABRI [Suspect]
     Indication: MULTIPLE SCLEROSIS
     Route: 042
     Dates: start: 20090923

REACTIONS (3)
  - INFUSION RELATED REACTION [None]
  - NEUTRALISING ANTIBODIES POSITIVE [None]
  - HYPERSENSITIVITY [None]
